FAERS Safety Report 12132091 (Version 1)
Quarter: 2016Q1

REPORT INFORMATION
  Report Type: Spontaneous
  Country: ES (occurrence: ES)
  Receive Date: 20160301
  Receipt Date: 20160301
  Transmission Date: 20160526
  Serious: Yes (Death, Hospitalization, Congenital Anomaly, Other)
  Sender: FDA-Public Use
  Company Number: ES-PFIZER INC-2016124206

PATIENT
  Weight: .38 kg

DRUGS (2)
  1. DOSTINEX [Suspect]
     Active Substance: CABERGOLINE
     Indication: HYPERPROLACTINAEMIA
     Dosage: UNK
     Route: 064
     Dates: start: 201504, end: 20150605
  2. HIDROSALURETIL [Suspect]
     Active Substance: HYDROCHLOROTHIAZIDE
     Dosage: UNK
     Route: 064
     Dates: start: 201504, end: 20150605

REACTIONS (4)
  - Pulmonary sequestration [Fatal]
  - Maternal exposure during pregnancy [Fatal]
  - Renal dysplasia [Unknown]
  - Cardiac aneurysm [Fatal]

NARRATIVE: CASE EVENT DATE: 20150821
